FAERS Safety Report 10203176 (Version 1)
Quarter: 2014Q2

REPORT INFORMATION
  Report Type: Report from Study
  Country: US (occurrence: US)
  Receive Date: 20140529
  Receipt Date: 20140529
  Transmission Date: 20141212
  Serious: Yes (Hospitalization)
  Sender: FDA-Public Use
  Company Number: US-BIOGENIDEC-2014BI050031

PATIENT
  Sex: Female

DRUGS (1)
  1. AVONEX [Suspect]
     Indication: MULTIPLE SCLEROSIS
     Route: 030
     Dates: start: 20131004

REACTIONS (7)
  - Optic neuritis [Unknown]
  - Balance disorder [Unknown]
  - Multiple sclerosis [Unknown]
  - Memory impairment [Unknown]
  - Influenza like illness [Unknown]
  - Drug ineffective [Unknown]
  - Anxiety [Unknown]
